FAERS Safety Report 8381808-7 (Version None)
Quarter: 2012Q2

REPORT INFORMATION
  Report Type: 
  Country: None (occurrence: None)
  Receive Date: 20120522
  Receipt Date: 20120522
  Transmission Date: 20120825
  Serious: No
  Sender: FDA-Public Use
  Company Number: None

PATIENT
  Age: 15 Year
  Sex: Female
  Weight: 61.2356 kg

DRUGS (2)
  1. CLARAVIS [Suspect]
     Indication: ACNE
     Dosage: 30MG 1 TIMES PER DAY PO
     Route: 048
     Dates: start: 20120418, end: 20120507
  2. CLARAVIS [Suspect]
     Indication: ACNE
     Dosage: 40MG 2 TIMES PER DAY PO
     Route: 048
     Dates: start: 20120508, end: 20120518

REACTIONS (2)
  - MOVEMENT DISORDER [None]
  - BACK PAIN [None]
